FAERS Safety Report 9722621 (Version 3)
Quarter: 2014Q1

REPORT INFORMATION
  Report Type: Spontaneous
  Country: US (occurrence: US)
  Receive Date: 20131202
  Receipt Date: 20140327
  Transmission Date: 20141002
  Serious: No
  Sender: FDA-Public Use
  Company Number: US-PFIZER INC-2013340699

PATIENT
  Age: 51 Year
  Sex: Female
  Weight: 83.9 kg

DRUGS (5)
  1. ZOLOFT [Suspect]
     Indication: ANTIDEPRESSANT THERAPY
     Dosage: 25 MG, DAILY
     Route: 048
     Dates: start: 199806, end: 199901
  2. ZOLOFT [Suspect]
     Indication: CRYING
     Dosage: 25 MG, ALTERNATE DAY (EVERY OTHER NIGHT)
     Route: 048
     Dates: start: 199901
  3. LIPITOR [Concomitant]
     Indication: BLOOD CHOLESTEROL INCREASED
     Dosage: 10 MG, DAILY
  4. GLIMEPIRIDE [Concomitant]
     Indication: DIABETES MELLITUS
     Dosage: 4 MG, 2X/DAY
  5. INSULIN [Concomitant]
     Indication: DIABETES MELLITUS
     Dosage: UNK, 2X/DAY

REACTIONS (3)
  - Drug ineffective [Recovered/Resolved]
  - Emotional disorder [Recovered/Resolved]
  - Drug intolerance [Unknown]
